FAERS Safety Report 8844096 (Version 1)
Quarter: 2012Q4

REPORT INFORMATION
  Report Type: 
  Country: NL (occurrence: NL)
  Receive Date: 20121016
  Receipt Date: 20121016
  Transmission Date: 20130627
  Serious: Yes (Hospitalization)
  Sender: FDA-Public Use
  Company Number: NL-SANOFI-AVENTIS-2012SA073260

PATIENT
  Age: 46 Year
  Sex: Female
  Weight: 70 kg

DRUGS (2)
  1. HYDROXYCHLOROQUINE [Suspect]
     Indication: SYSTEMIC LUPUS ERYTHEMATOSIS
     Route: 048
     Dates: start: 20120205, end: 20120816
  2. ESOMEPRAZOL [Concomitant]
     Route: 048
     Dates: start: 2003

REACTIONS (1)
  - Dyspnoea [Recovering/Resolving]
